FAERS Safety Report 15010888 (Version 1)
Quarter: 2018Q2

REPORT INFORMATION
  Report Type: Report from Study
  Country: PH (occurrence: PH)
  Receive Date: 20180614
  Receipt Date: 20180614
  Transmission Date: 20180711
  Serious: Yes (Other)
  Sender: FDA-Public Use
  Company Number: PH-PFIZER INC-2018192769

PATIENT
  Sex: Female
  Weight: 99.5 kg

DRUGS (5)
  1. SOMAVERT [Concomitant]
     Active Substance: PEGVISOMANT
     Indication: PITUITARY TUMOUR BENIGN
     Dosage: 20 MG, DAILY
     Route: 058
     Dates: start: 201103
  2. PREDNISONE. [Concomitant]
     Active Substance: PREDNISONE
     Indication: ADRENAL INSUFFICIENCY
     Dosage: 5 MG, DAILY
     Route: 048
     Dates: start: 201103
  3. DOSTINEX [Suspect]
     Active Substance: CABERGOLINE
     Indication: PROLACTIN-PRODUCING PITUITARY TUMOUR
  4. DOSTINEX [Suspect]
     Active Substance: CABERGOLINE
     Indication: GROWTH HORMONE-PRODUCING PITUITARY TUMOUR
  5. DOSTINEX [Suspect]
     Active Substance: CABERGOLINE
     Indication: PITUITARY TUMOUR BENIGN
     Dosage: 0.5 MG, 2X/WEEK
     Route: 048
     Dates: start: 201103

REACTIONS (2)
  - Blood prolactin increased [Recovered/Resolved]
  - Drug dose omission [Unknown]

NARRATIVE: CASE EVENT DATE: 201801
